FAERS Safety Report 4673457-9 (Version None)
Quarter: 2005Q2

REPORT INFORMATION
  Report Type: 
  Country: None (occurrence: None)
  Receive Date: 20050525
  Receipt Date: 20050511
  Transmission Date: 20051028
  Serious: Yes (Hospitalization)
  Sender: FDA-Public Use
  Company Number: JP-GLAXOSMITHKLINE-B0380900A

PATIENT
  Age: 47 Year
  Sex: Male

DRUGS (3)
  1. EPIVIR [Suspect]
     Indication: HIV INFECTION
     Dosage: 150MG TWICE PER DAY
     Route: 048
     Dates: start: 19970405, end: 20050123
  2. RETROVIR [Suspect]
     Indication: HIV INFECTION
     Dosage: 100MG THREE TIMES PER DAY
     Route: 048
     Dates: start: 19970405, end: 20050123
  3. RECOMBINATE [Concomitant]
     Indication: FACTOR VIII DEFICIENCY
     Route: 042
     Dates: start: 20040401

REACTIONS (1)
  - HERPES ZOSTER [None]
